FAERS Safety Report 24126923 (Version 5)
Quarter: 2025Q2

REPORT INFORMATION
  Report Type: Report from Study
  Country: CA (occurrence: CA)
  Receive Date: 20240723
  Receipt Date: 20250520
  Transmission Date: 20250716
  Serious: Yes (Other)
  Sender: TAKEDA
  Company Number: CA-TAKEDA-2024TUS074009

PATIENT
  Sex: Female

DRUGS (12)
  1. VEDOLIZUMAB [Suspect]
     Active Substance: VEDOLIZUMAB
     Indication: Crohn^s disease
  2. VEDOLIZUMAB [Suspect]
     Active Substance: VEDOLIZUMAB
  3. VEDOLIZUMAB [Suspect]
     Active Substance: VEDOLIZUMAB
  4. CITALOPRAM [Concomitant]
     Active Substance: CITALOPRAM
     Dosage: 10 MILLIGRAM, QD
  5. CITALOPRAM [Concomitant]
     Active Substance: CITALOPRAM
     Dosage: 40 MILLIGRAM, QD
     Dates: start: 20230329
  6. VITAMIN B12 [Concomitant]
     Active Substance: CYANOCOBALAMIN
     Dosage: UNK UNK, MONTHLY
  7. TYLENOL [Concomitant]
     Active Substance: ACETAMINOPHEN
  8. ACETAMINOPHEN [Concomitant]
     Active Substance: ACETAMINOPHEN
  9. WELLBUTRIN [Concomitant]
     Active Substance: BUPROPION HYDROCHLORIDE
  10. ZYBAN [Concomitant]
     Active Substance: BUPROPION HYDROCHLORIDE
  11. CIMZIA [Concomitant]
     Active Substance: CERTOLIZUMAB PEGOL
  12. Sandoz magnesium [Concomitant]

REACTIONS (8)
  - Crohn^s disease [Unknown]
  - Pyoderma gangrenosum [Unknown]
  - Rheumatoid arthritis [Unknown]
  - Fistula [Unknown]
  - Abscess [Unknown]
  - Aphthous ulcer [Unknown]
  - Anal fissure [Unknown]
  - Arthralgia [Unknown]
